FAERS Safety Report 8988180 (Version 1)
Quarter: 2012Q4

REPORT INFORMATION
  Report Type: 
  Country: FR (occurrence: FR)
  Receive Date: 20121227
  Receipt Date: 20121227
  Transmission Date: 20130627
  Serious: Yes (Other)
  Sender: FDA-Public Use
  Company Number: FR-ROCHE-1173317

PATIENT
  Age: 53 Year
  Sex: Female

DRUGS (3)
  1. ZELBORAF [Suspect]
     Indication: PRODUCT USED FOR UNKNOWN INDICATION
     Route: 048
     Dates: start: 20120521
  2. ZELBORAF [Suspect]
     Route: 048
  3. DETICENE [Concomitant]
     Route: 065

REACTIONS (6)
  - Photosensitivity reaction [Recovered/Resolved]
  - Rash maculo-papular [Recovered/Resolved]
  - Pruritus [Recovered/Resolved]
  - Arthralgia [Not Recovered/Not Resolved]
  - Squamous cell carcinoma [Recovering/Resolving]
  - Transaminases increased [Recovered/Resolved]
